FAERS Safety Report 4926692-6 (Version None)
Quarter: 2006Q1

REPORT INFORMATION
  Report Type: 
  Country: None (occurrence: None)
  Receive Date: 20060228
  Receipt Date: 20050526
  Transmission Date: 20060701
  Serious: No
  Sender: FDA-Public Use
  Company Number: US-GLAXOSMITHKLINE-A0560320A

PATIENT
  Sex: Female

DRUGS (1)
  1. LAMICTAL [Suspect]
     Dosage: 50MG PER DAY
     Route: 048

REACTIONS (6)
  - ANXIETY [None]
  - CRYING [None]
  - DRUG INEFFECTIVE [None]
  - LOCAL SWELLING [None]
  - PRURITUS [None]
  - SWELLING [None]
